FAERS Safety Report 6596973-1 (Version None)
Quarter: 2010Q1

REPORT INFORMATION
  Report Type: 
  Country: None (occurrence: None)
  Receive Date: 20100222
  Receipt Date: 20100222
  Transmission Date: 20100710
  Serious: Yes (Other)
  Sender: FDA-Public Use
  Company Number: None

PATIENT
  Sex: Female
  Weight: 15.8759 kg

DRUGS (1)
  1. TAMIFLU [Suspect]
     Indication: INFLUENZA LIKE ILLNESS
     Dates: start: 20091114, end: 20091115

REACTIONS (4)
  - DELIRIUM [None]
  - INCOHERENT [None]
  - NIGHTMARE [None]
  - UNRESPONSIVE TO STIMULI [None]
